FAERS Safety Report 4490743-6 (Version None)
Quarter: 2004Q4

REPORT INFORMATION
  Report Type: 
  Country: None (occurrence: None)
  Receive Date: 20041027
  Receipt Date: 20041013
  Transmission Date: 20050328
  Serious: Yes (Hospitalization)
  Sender: FDA-Public Use
  Company Number: 2004-BP-09779NB

PATIENT
  Age: 71 Year
  Sex: Female

DRUGS (3)
  1. MICARDIS [Suspect]
     Dosage: 40 MG PO
     Route: 048
     Dates: start: 20041006, end: 20041009
  2. PENTCILLIN (PIPERACILLIN SODIUM) (AMV) [Suspect]
     Dosage: 4 G IV
     Route: 042
     Dates: start: 20040928, end: 20041008
  3. AMLODIPINE BESYLATE [Concomitant]

REACTIONS (1)
  - THROMBOCYTOPENIA [None]
